FAERS Safety Report 15587625 (Version 1)
Quarter: 2018Q4

REPORT INFORMATION
  Report Type: Spontaneous
  Country: NL (occurrence: NL)
  Receive Date: 20181105
  Receipt Date: 20181105
  Transmission Date: 20190205
  Serious: Yes (Hospitalization)
  Sender: FDA-Public Use
  Company Number: PHHY2018NL144492

PATIENT
  Age: 72 Year
  Sex: Male
  Weight: 83.7 kg

DRUGS (8)
  1. METFORMINE [Concomitant]
     Active Substance: METFORMIN HYDROCHLORIDE
     Indication: PRODUCT USED FOR UNKNOWN INDICATION
     Dosage: 500 MG, Q12H
     Route: 065
     Dates: start: 2015
  2. IRBESARTAN. [Concomitant]
     Active Substance: IRBESARTAN
     Indication: PRODUCT USED FOR UNKNOWN INDICATION
     Dosage: 300 MG, QD (1DD1)
     Route: 065
     Dates: start: 2018
  3. TIMOLOL. [Concomitant]
     Active Substance: TIMOLOL
     Indication: PRODUCT USED FOR UNKNOWN INDICATION
     Dosage: 1 GTT, Q8H (3DD1)
     Route: 065
     Dates: start: 2013
  4. HYDROCHLOORTHIAZIDE [Suspect]
     Active Substance: HYDROCHLOROTHIAZIDE
     Indication: HYPERTENSION
     Dosage: 25 MG, QD (1X PER DAY 1 STUK)
     Route: 065
     Dates: start: 2017, end: 20181002
  5. HYLAN [Concomitant]
     Indication: PRODUCT USED FOR UNKNOWN INDICATION
     Dosage: 1 GTT, Q12H
     Route: 065
     Dates: start: 2017
  6. SPIRONOLACTON [Suspect]
     Active Substance: SPIRONOLACTONE
     Indication: HYPERTENSION
     Dosage: 25 MG, QD (1X PER DAY 1 STUK)
     Route: 065
     Dates: start: 201804, end: 20181002
  7. OMEPRAZOL [Suspect]
     Active Substance: OMEPRAZOLE
     Indication: ABDOMINAL DISCOMFORT
     Dosage: 40 MG, QD (1X PER DAY 1 STUK)
     Route: 065
     Dates: start: 2016, end: 20181002
  8. PHENPROCOUMON [Concomitant]
     Active Substance: PHENPROCOUMON
     Indication: PRODUCT USED FOR UNKNOWN INDICATION
     Dosage: UNK
     Route: 065

REACTIONS (4)
  - Hypomagnesaemia [Recovering/Resolving]
  - Hypokalaemia [Recovering/Resolving]
  - Alkalosis hypochloraemic [Recovering/Resolving]
  - Hypocalcaemia [Recovering/Resolving]

NARRATIVE: CASE EVENT DATE: 20180103
